FAERS Safety Report 6921011-8 (Version None)
Quarter: 2010Q3

REPORT INFORMATION
  Report Type: 
  Country: None (occurrence: None)
  Receive Date: 20100812
  Receipt Date: 20100804
  Transmission Date: 20110219
  Serious: Yes (Other)
  Sender: FDA-Public Use
  Company Number: IL-PFIZER INC-2010097764

PATIENT
  Age: 40 Year
  Sex: Male

DRUGS (5)
  1. LIPITOR [Suspect]
     Dosage: 10 MG, 1X/DAY
     Dates: start: 20100101, end: 20100101
  2. ENALAPRIL [Concomitant]
     Dosage: 5 MG, 1X/DAY
  3. NORMITEN [Concomitant]
     Dosage: 25 MG, 2X/DAY
  4. PRILOSEC [Concomitant]
     Dosage: UNK
  5. ACETYLSALICYLIC ACID [Concomitant]
     Dosage: 100 MG, 1X/DAY

REACTIONS (1)
  - HYPERTENSION [None]
